FAERS Safety Report 12827368 (Version 16)
Quarter: 2020Q1

REPORT INFORMATION
  Report Type: Report from Study
  Country: None (occurrence: NL)
  Receive Date: 20161007
  Receipt Date: 20200302
  Transmission Date: 20200409
  Serious: Yes (Hospitalization, Other)
  Sender: FDA-Public Use
  Company Number: NL-ABBVIE-16P-114-1744963-00

PATIENT
  Age: 59 Year
  Sex: Female

DRUGS (4)
  1. DUODOPA [Suspect]
     Active Substance: CARBIDOPA\LEVODOPA
     Indication: PARKINSON^S DISEASE
     Dosage: MD: 5, CD: 2, ED: 3
     Route: 050
     Dates: start: 20070530
  2. DUODOPA [Suspect]
     Active Substance: CARBIDOPA\LEVODOPA
     Dosage: MORNING DOSE: 5 CONTINUOUS DOSE: 2.3 EXTRA DOSE: 3
     Route: 050
  3. LEVODOPA/CARBIDOPA [Concomitant]
     Active Substance: CARBIDOPA\LEVODOPA
     Indication: PARKINSON^S DISEASE
  4. DUODOPA [Suspect]
     Active Substance: CARBIDOPA\LEVODOPA
     Dosage: MORNING DOSE: 5 CONTINUOUS DOSE: 2.2 EXTRA DOSE: 3
     Route: 050

REACTIONS (49)
  - Musculoskeletal stiffness [Not Recovered/Not Resolved]
  - Infrequent bowel movements [Not Recovered/Not Resolved]
  - Discomfort [Not Recovered/Not Resolved]
  - Somnolence [Not Recovered/Not Resolved]
  - Hypokinesia [Not Recovered/Not Resolved]
  - Hallucination [Recovered/Resolved]
  - Anxiety [Not Recovered/Not Resolved]
  - Stoma site discharge [Not Recovered/Not Resolved]
  - Wound secretion [Recovered/Resolved]
  - Muscle spasms [Not Recovered/Not Resolved]
  - Urinary tract infection [Recovered/Resolved]
  - Disease progression [Unknown]
  - Restlessness [Not Recovered/Not Resolved]
  - Fatigue [Not Recovered/Not Resolved]
  - Constipation [Not Recovered/Not Resolved]
  - Stoma site erythema [Recovered/Resolved]
  - Initial insomnia [Recovered/Resolved]
  - Bradykinesia [Not Recovered/Not Resolved]
  - Mobility decreased [Recovered/Resolved]
  - Tension [Not Recovered/Not Resolved]
  - Irregular sleep wake rhythm disorder [Not Recovered/Not Resolved]
  - Emotional disorder [Not Recovered/Not Resolved]
  - Judgement impaired [Not Recovered/Not Resolved]
  - Mobility decreased [Not Recovered/Not Resolved]
  - Nightmare [Not Recovered/Not Resolved]
  - Stoma site discharge [Recovered/Resolved]
  - Stoma site pain [Recovered/Resolved]
  - Stoma site reaction [Not Recovered/Not Resolved]
  - Gait inability [Not Recovered/Not Resolved]
  - Posture abnormal [Not Recovered/Not Resolved]
  - Cognitive disorder [Recovered/Resolved]
  - Weight increased [Recovered/Resolved]
  - Muscle rigidity [Not Recovered/Not Resolved]
  - Bronchitis [Not Recovered/Not Resolved]
  - Purulence [Recovered/Resolved]
  - Musculoskeletal stiffness [Not Recovered/Not Resolved]
  - Middle insomnia [Not Recovered/Not Resolved]
  - Dystonia [Not Recovered/Not Resolved]
  - Device dislocation [Not Recovered/Not Resolved]
  - Stoma site irritation [Recovered/Resolved]
  - Dyskinesia [Not Recovered/Not Resolved]
  - Stress [Not Recovered/Not Resolved]
  - Abnormal faeces [Not Recovered/Not Resolved]
  - Memory impairment [Not Recovered/Not Resolved]
  - Abnormal dreams [Not Recovered/Not Resolved]
  - Somnolence [Recovered/Resolved]
  - On and off phenomenon [Recovering/Resolving]
  - Stoma site erythema [Not Recovered/Not Resolved]
  - Stoma site odour [Not Recovered/Not Resolved]

NARRATIVE: CASE EVENT DATE: 20161002
